FAERS Safety Report 18266436 (Version 3)
Quarter: 2020Q4

REPORT INFORMATION
  Report Type: Spontaneous
  Country: US (occurrence: US)
  Receive Date: 20200915
  Receipt Date: 20201204
  Transmission Date: 20210113
  Serious: Yes (Other)
  Sender: FDA-Public Use
  Company Number: US-PFIZER INC-2020352618

PATIENT
  Age: 37 Year
  Sex: Male

DRUGS (10)
  1. DOXORUBICIN HCL [Suspect]
     Active Substance: DOXORUBICIN HYDROCHLORIDE
     Dosage: UNK, CYCLIC (DA-EPOCH)
  2. PREDNISONE. [Suspect]
     Active Substance: PREDNISONE
     Dosage: UNK, CYCLIC (DA-EPOCH)
  3. ETOPOSIDE. [Suspect]
     Active Substance: ETOPOSIDE
     Dosage: UNK, CYCLIC (DA-EPOCH)
  4. PREDNISONE. [Suspect]
     Active Substance: PREDNISONE
     Indication: ADULT T-CELL LYMPHOMA/LEUKAEMIA
     Dosage: UNK, CYCLIC (CHOEP)
  5. VINCRISTINE SULFATE. [Suspect]
     Active Substance: VINCRISTINE SULFATE
     Indication: ADULT T-CELL LYMPHOMA/LEUKAEMIA
     Dosage: UNK, CYCLIC (CHOEP)
  6. CYCLOPHOSPHAMIDE. [Suspect]
     Active Substance: CYCLOPHOSPHAMIDE
     Indication: ADULT T-CELL LYMPHOMA/LEUKAEMIA
     Dosage: UNK, CYCLIC (CHOEP)
  7. ETOPOSIDE. [Suspect]
     Active Substance: ETOPOSIDE
     Indication: ADULT T-CELL LYMPHOMA/LEUKAEMIA
     Dosage: UNK, CYCLIC (CHOEP)
  8. DOXORUBICIN HCL [Suspect]
     Active Substance: DOXORUBICIN HYDROCHLORIDE
     Indication: ADULT T-CELL LYMPHOMA/LEUKAEMIA
     Dosage: UNK, CYCLIC (CHOEP)
  9. CYCLOPHOSPHAMIDE. [Suspect]
     Active Substance: CYCLOPHOSPHAMIDE
     Dosage: UNK, CYCLIC (DA-EPOCH)
  10. VINCRISTINE SULFATE. [Suspect]
     Active Substance: VINCRISTINE SULFATE
     Dosage: UNK, CYCLIC (DA-EPOCH)

REACTIONS (1)
  - Tumour lysis syndrome [Recovering/Resolving]
